FAERS Safety Report 24648170 (Version 1)
Quarter: 2024Q4

REPORT INFORMATION
  Report Type: Spontaneous
  Country: CN (occurrence: CN)
  Receive Date: 20241121
  Receipt Date: 20241121
  Transmission Date: 20250114
  Serious: Yes (Hospitalization)
  Sender: GLAXOSMITHKLINE
  Company Number: CN-GSK-CN2024APC142596

PATIENT

DRUGS (3)
  1. LAMICTAL [Suspect]
     Active Substance: LAMOTRIGINE
     Indication: Depression
     Dosage: 50 MG, QD
     Route: 048
     Dates: start: 20241010, end: 20241011
  2. CLONAZEPAM [Suspect]
     Active Substance: CLONAZEPAM
     Indication: Depression
     Dosage: 2 MG, QD
     Route: 048
     Dates: start: 20241010, end: 20241011
  3. CLONAZEPAM [Suspect]
     Active Substance: CLONAZEPAM
     Indication: Insomnia

REACTIONS (15)
  - Drug eruption [Recovering/Resolving]
  - Pyrexia [Recovering/Resolving]
  - Swelling [Recovering/Resolving]
  - Chills [Recovering/Resolving]
  - Myalgia [Recovering/Resolving]
  - Arthralgia [Recovering/Resolving]
  - Fatigue [Recovering/Resolving]
  - Abdominal pain [Recovering/Resolving]
  - Tachycardia [Recovering/Resolving]
  - Viral rash [Recovering/Resolving]
  - Erythema [Recovering/Resolving]
  - Rash erythematous [Recovering/Resolving]
  - Pruritus [Recovering/Resolving]
  - Treatment noncompliance [Unknown]
  - Inappropriate schedule of product administration [Unknown]

NARRATIVE: CASE EVENT DATE: 20241105
